FAERS Safety Report 7113523-1 (Version None)
Quarter: 2010Q4

REPORT INFORMATION
  Report Type: 
  Country: None (occurrence: None)
  Receive Date: 20101119
  Receipt Date: 20101115
  Transmission Date: 20110411
  Serious: No
  Sender: FDA-Public Use
  Company Number: US-PFIZER INC-2010150952

PATIENT
  Sex: Female

DRUGS (2)
  1. METRONIDAZOLE [Suspect]
     Indication: GASTROINTESTINAL PAIN
     Dosage: UNK
     Dates: start: 20101015
  2. LEVAQUIN [Suspect]
     Indication: GASTROINTESTINAL PAIN
     Dosage: UNK
     Dates: start: 20101015

REACTIONS (3)
  - JOINT STIFFNESS [None]
  - JOINT SWELLING [None]
  - PAIN IN EXTREMITY [None]
